FAERS Safety Report 12620921 (Version 1)
Quarter: 2016Q3

REPORT INFORMATION
  Report Type: Spontaneous
  Country: DE (occurrence: DE)
  Receive Date: 20160804
  Receipt Date: 20160804
  Transmission Date: 20161109
  Serious: Yes (Congenital Anomaly, Other)
  Sender: FDA-Public Use
  Company Number: DE-SUN PHARMACEUTICAL INDUSTRIES LTD-2016RR-121482

PATIENT
  Age: 1 Day
  Sex: Female
  Weight: 1.23 kg

DRUGS (9)
  1. SERTRALINE [Suspect]
     Active Substance: SERTRALINE HYDROCHLORIDE
     Indication: ANXIETY DISORDER
     Dosage: 75 MG, QD, 0.-31.1 GESTATIONAL WEEK
     Route: 064
     Dates: start: 20150223, end: 20150929
  2. MCP [Concomitant]
     Active Substance: METOCLOPRAMIDE HYDROCHLORIDE
     Indication: NAUSEA
     Dosage: UNK, 13.4.-13.4. GESTATIONAL WEEK
     Route: 064
     Dates: start: 20150529, end: 20150529
  3. GYNVITAL GRAVIDA [Concomitant]
     Active Substance: HERBALS
     Indication: PROPHYLAXIS OF NEURAL TUBE DEFECT
     Dosage: 0.4 MG, QD, 0.-10. GESTATIONAL WEEK
     Route: 064
  4. PANTOPRAZOLE [Concomitant]
     Active Substance: PANTOPRAZOLE SODIUM
     Indication: GASTRITIS
     Dosage: UNK, UNKNOWN TRIMESTER
     Route: 064
  5. TAVOR 1.0 EXPIDET [Concomitant]
     Indication: PRODUCT USED FOR UNKNOWN INDICATION
     Dosage: 1 MG, QD, UNKNOWN TRIMESTER
     Route: 064
  6. SERTRALINE [Suspect]
     Active Substance: SERTRALINE HYDROCHLORIDE
     Dosage: UNK
  7. OMEPRAZOLE. [Concomitant]
     Active Substance: OMEPRAZOLE
     Indication: PROPHYLAXIS AGAINST GASTROINTESTINAL ULCER
     Dosage: 20 MG, DAILY, FOR PROPHYLAXIS OF FOR GASTRITIS. CONTRADICTORY STATEMENTS IF PANTOPRAZOL OR OMEPRAZOL
     Route: 064
  8. GLUCOSE 5% INFUSION [Concomitant]
     Indication: NAUSEA
     Dosage: UNK, 13.4.-13.4. GESTATIONAL WEEK
     Route: 064
     Dates: start: 20150529, end: 20150529
  9. MIRTAZAPIN [Concomitant]
     Active Substance: MIRTAZAPINE
     Indication: NAUSEA
     Dosage: 13.4.-GESTATIONAL WEEK, IF REQUIRED. IN TOTAL ONLY FOR 3 DAYS.
     Route: 064

REACTIONS (5)
  - Granulocytopenia neonatal [Not Recovered/Not Resolved]
  - Tethered cord syndrome [Not Recovered/Not Resolved]
  - Congenital skin dimples [Not Recovered/Not Resolved]
  - Premature baby [Recovered/Resolved]
  - Neonatal respiratory distress syndrome [Recovered/Resolved]

NARRATIVE: CASE EVENT DATE: 20150929
